FAERS Safety Report 10093932 (Version 1)
Quarter: 2014Q2

REPORT INFORMATION
  Report Type: Spontaneous
  Country: US (occurrence: US)
  Receive Date: 20140421
  Receipt Date: 20140421
  Transmission Date: 20141212
  Serious: No
  Sender: FDA-Public Use
  Company Number: US-SA-2014SA032586

PATIENT
  Sex: Female

DRUGS (6)
  1. ALLEGRA [Suspect]
     Indication: MYCOTIC ALLERGY
     Route: 048
  2. ALLEGRA [Suspect]
     Indication: PRURITUS
     Route: 048
  3. NASONEX [Concomitant]
  4. SINEX [Concomitant]
  5. ALL OTHER THERAPEUTIC PRODUCTS [Concomitant]
  6. THYROID THERAPY [Concomitant]

REACTIONS (1)
  - Adverse event [Unknown]
